FAERS Safety Report 8105756-2 (Version None)
Quarter: 2012Q1

REPORT INFORMATION
  Report Type: 
  Country: None (occurrence: None)
  Receive Date: 20120201
  Receipt Date: 20120123
  Transmission Date: 20120608
  Serious: Yes (Hospitalization)
  Sender: FDA-Public Use
  Company Number: CA-ASTRAZENECA-2012SE01149

PATIENT
  Age: 68 Year
  Sex: Female
  Weight: 72.6 kg

DRUGS (10)
  1. ZOPICLONE [Concomitant]
     Dosage: AT NIGHT
  2. METFORMIN HCL [Concomitant]
     Indication: DIABETES MELLITUS
     Route: 048
  3. ELAVIL [Concomitant]
  4. NICOTINE [Concomitant]
     Dosage: AS REQUIRED
  5. PLAVIX [Concomitant]
  6. SIMVASTATIN [Concomitant]
  7. CRESTOR [Suspect]
     Route: 048
     Dates: end: 20111207
  8. ASPIRIN [Concomitant]
     Route: 048
  9. GLYBURIDE [Concomitant]
     Indication: DIABETES MELLITUS
     Route: 048
  10. RAMIPRIL [Concomitant]
     Indication: HYPERTENSION
     Route: 048

REACTIONS (5)
  - TREMOR [None]
  - MEMORY IMPAIRMENT [None]
  - TRANSIENT ISCHAEMIC ATTACK [None]
  - VOMITING [None]
  - MUSCULAR WEAKNESS [None]
